FAERS Safety Report 4641964-0 (Version None)
Quarter: 2005Q2

REPORT INFORMATION
  Report Type: 
  Country: None (occurrence: None)
  Receive Date: 20050420
  Receipt Date: 20050408
  Transmission Date: 20051028
  Serious: Yes (Hospitalization, Other)
  Sender: FDA-Public Use
  Company Number: KII-2005-0016006

PATIENT
  Age: 49 Year
  Sex: Female

DRUGS (8)
  1. OXYCONTIN [Suspect]
     Indication: PAIN
     Dosage: ORAL
     Route: 048
  2. VERAPAMIL [Suspect]
     Dosage: SEE TEXT, ORAL
     Route: 048
  3. NORTRIPTYLINE HCL [Suspect]
     Dosage: SEE TEXT, ORAL
     Route: 048
  4. ANTIDEPRESSANTS [Suspect]
     Dosage: ORAL
     Route: 048
  5. ACETAMINOPHEN [Suspect]
  6. VITAMIN B12 [Concomitant]
  7. FOLIC ACID [Concomitant]
  8. METHADONE HCL [Concomitant]

REACTIONS (18)
  - ACCIDENTAL OVERDOSE [None]
  - AGITATION [None]
  - ATRIOVENTRICULAR BLOCK FIRST DEGREE [None]
  - BLOOD CALCIUM INCREASED [None]
  - BLOOD MAGNESIUM INCREASED [None]
  - BLOOD POTASSIUM DECREASED [None]
  - BLOOD PRESSURE SYSTOLIC INCREASED [None]
  - BOWEL SOUNDS ABNORMAL [None]
  - BRADYCARDIA [None]
  - BUNDLE BRANCH BLOCK RIGHT [None]
  - CARDIAC ARREST [None]
  - ELECTROMECHANICAL DISSOCIATION [None]
  - FALL [None]
  - HYPOTENSION [None]
  - NODAL RHYTHM [None]
  - OXYGEN SATURATION DECREASED [None]
  - PAIN [None]
  - VISUAL DISTURBANCE [None]
